FAERS Safety Report 6300645-8 (Version None)
Quarter: 2009Q3

REPORT INFORMATION
  Report Type: 
  Country: None (occurrence: None)
  Receive Date: 20090803
  Receipt Date: 20090720
  Transmission Date: 20100115
  Serious: Yes (Other)
  Sender: FDA-Public Use
  Company Number: ADR10762009

PATIENT
  Age: 42 Year
  Sex: Male

DRUGS (7)
  1. AMLODIPINE [Suspect]
  2. RAMIPRIL [Suspect]
  3. AMLODIPINE [Concomitant]
  4. ATORVASTATIN [Concomitant]
  5. BENDDROFLUAZIDE [Concomitant]
  6. GLICLAZIDE [Concomitant]
  7. METFORMIN (UNKNOWN STRENGTHS) [Concomitant]

REACTIONS (2)
  - DIABETES MELLITUS INADEQUATE CONTROL [None]
  - OBESITY [None]
